FAERS Safety Report 5574800-9 (Version None)
Quarter: 2007Q4

REPORT INFORMATION
  Report Type: 
  Country: None (occurrence: None)
  Receive Date: 20071226
  Receipt Date: 20071226
  Transmission Date: 20080405
  Serious: Yes (Hospitalization)
  Sender: FDA-Public Use
  Company Number: None

PATIENT
  Age: 83 Year
  Sex: Male

DRUGS (2)
  1. LOVASTATIN [Suspect]
     Indication: CORONARY ARTERY DISEASE
     Dosage: 20MG HS PO
     Route: 048
     Dates: start: 20070110, end: 20070908
  2. DILTIAZEM [Suspect]
     Dosage: 180MG EVERY DAY PO
     Route: 048
     Dates: start: 20070102, end: 20071006

REACTIONS (3)
  - BLOOD CREATINE PHOSPHOKINASE INCREASED [None]
  - HEPATIC ENZYME INCREASED [None]
  - MYALGIA [None]
